FAERS Safety Report 8140464-3 (Version None)
Quarter: 2012Q1

REPORT INFORMATION
  Report Type: 
  Country: None (occurrence: None)
  Receive Date: 20120216
  Receipt Date: 20120213
  Transmission Date: 20120608
  Serious: Yes (Death)
  Sender: FDA-Public Use
  Company Number: US-PFIZER INC-2012038122

PATIENT
  Sex: Male

DRUGS (11)
  1. ENOXAPARIN [Concomitant]
     Dosage: 100 MG/ML, UNK
  2. CITALOPRAM [Concomitant]
     Dosage: 10 MG, UNK
  3. SUTENT [Suspect]
     Dosage: 50 MG, 1X/DAY, FOR 28 DAYS, THEN STOP FOR 14DAYS AND REPEAT
     Route: 048
  4. PANTOPRAZOLE [Concomitant]
     Dosage: 20 MG, UNK
  5. LORAZEPAM [Concomitant]
     Dosage: 0.5 MG, UNK
  6. CLARITIN [Concomitant]
     Dosage: 10 MG, UNK
  7. KEPPRA [Concomitant]
     Dosage: 250 MG, UNK
  8. GABAPENTIN [Concomitant]
     Dosage: 100 MG, UNK
  9. PROAIR HFA [Concomitant]
     Dosage: UNK
  10. DECADRON [Concomitant]
     Dosage: 0.5 MG, UNK
  11. BENADRYL [Concomitant]
     Dosage: 25 MG, UNK

REACTIONS (1)
  - DEATH [None]
